FAERS Safety Report 8206311-6 (Version None)
Quarter: 2012Q1

REPORT INFORMATION
  Report Type: 
  Country: None (occurrence: None)
  Receive Date: 20120313
  Receipt Date: 20120306
  Transmission Date: 20120608
  Serious: Yes (Death, Hospitalization)
  Sender: FDA-Public Use
  Company Number: PHHY2012CA005215

PATIENT
  Age: 57 Year
  Sex: Male

DRUGS (12)
  1. VALGANCICLOVIR [Concomitant]
     Indication: ANTIVIRAL PROPHYLAXIS
     Dosage: UNK UKN, UNK
  2. CARBIDOPA + LEVODOPA [Concomitant]
     Dosage: 50/200 MG 1 TABLET AT NIGHT
  3. PROPRANOLOL [Concomitant]
     Dosage: UNK UKN, UNK
  4. CARBIDOPA + LEVODOPA [Concomitant]
     Dosage: 25/100 MG 1.5 TABLETS 4 TIMES/D
  5. PREDNISONE TAB [Concomitant]
     Dosage: UNK UKN, UNK
  6. CARBIDOPA + LEVODOPA [Concomitant]
     Dosage: 50/200 1 TABLET AT NIGHT
  7. CYCLOSPORINE [Suspect]
     Indication: LIVER TRANSPLANT
     Dosage: UNK UKN, UNK
     Route: 048
     Dates: start: 20091203
  8. METHYLPREDNISOLONE [Concomitant]
     Indication: LIVER TRANSPLANT
  9. RIBAVIRIN [Concomitant]
     Dosage: UNK UKN, UNK
  10. MYCOPHENOLATE MOFETIL [Concomitant]
     Indication: LIVER TRANSPLANT
  11. RABEPRAZOLE SODIUM [Concomitant]
     Dosage: UNK UKN, UNK
  12. CARBIDOPA + LEVODOPA [Concomitant]
     Dosage: 25/100 MG 2 TABLETS 4 TIMES/D

REACTIONS (13)
  - HEPATITIS CHOLESTATIC [None]
  - LIVER GRAFT LOSS [None]
  - WHITE BLOOD CELL COUNT DECREASED [None]
  - HAEMOGLOBIN DECREASED [None]
  - HYPERNATRAEMIA [None]
  - HEPATIC ENZYME INCREASED [None]
  - DIABETIC KETOACIDOSIS [None]
  - HEPATIC FAILURE [None]
  - HEPATITIS C [None]
  - GINGIVAL HYPERPLASIA [None]
  - ENCEPHALOPATHY [None]
  - PANCREATITIS [None]
  - PLATELET COUNT DECREASED [None]
